FAERS Safety Report 22954483 (Version 3)
Quarter: 2023Q4

REPORT INFORMATION
  Report Type: Spontaneous
  Country: US (occurrence: US)
  Receive Date: 20230918
  Receipt Date: 20231123
  Transmission Date: 20240110
  Serious: No
  Sender: FDA-Public Use
  Company Number: US-ABBVIE-5411127

PATIENT
  Sex: Female
  Weight: 66 kg

DRUGS (1)
  1. CREON [Suspect]
     Active Substance: PANCRELIPASE AMYLASE\PANCRELIPASE LIPASE\PANCRELIPASE PROTEASE
     Indication: Product used for unknown indication
     Dosage: FORM STRENGTH: 36000 UNIT
     Route: 048

REACTIONS (5)
  - Diarrhoea [Unknown]
  - Drug ineffective [Unknown]
  - Product contamination [Not Recovered/Not Resolved]
  - Product taste abnormal [Unknown]
  - Anxiety [Not Recovered/Not Resolved]

NARRATIVE: CASE EVENT DATE: 20230101
